FAERS Safety Report 21060074 (Version 3)
Quarter: 2023Q2

REPORT INFORMATION
  Report Type: Spontaneous
  Country: US (occurrence: US)
  Receive Date: 20220708
  Receipt Date: 20230613
  Transmission Date: 20230721
  Serious: Yes (Other)
  Sender: FDA-Public Use
  Company Number: US-PFIZER INC-PV202200018597

PATIENT
  Age: 67 Year
  Sex: Female

DRUGS (2)
  1. INLYTA [Suspect]
     Active Substance: AXITINIB
     Dosage: UNK
     Dates: start: 20210506
  2. INLYTA [Suspect]
     Active Substance: AXITINIB
     Dosage: 5 MG, 1X/DAY (1 TAB QD)
     Dates: end: 20221201

REACTIONS (6)
  - Loss of consciousness [Unknown]
  - Blood pressure increased [Recovering/Resolving]
  - Constipation [Unknown]
  - Confusional state [Unknown]
  - Disorientation [Unknown]
  - Off label use [Unknown]
